FAERS Safety Report 8354217-4 (Version None)
Quarter: 2012Q2

REPORT INFORMATION
  Report Type: 
  Country: None (occurrence: None)
  Receive Date: 20120511
  Receipt Date: 20120503
  Transmission Date: 20120825
  Serious: Yes (Other)
  Sender: FDA-Public Use
  Company Number: IT-ROCHE-1065627

PATIENT

DRUGS (4)
  1. FLUOROURACIL [Concomitant]
  2. LEUCOVORIN CALCIUM [Concomitant]
  3. IRINOTECAN HCL [Concomitant]
  4. AVASTIN [Suspect]
     Indication: PRODUCT USED FOR UNKNOWN INDICATION
     Dates: start: 20090122, end: 20090205

REACTIONS (1)
  - TRANSAMINASES INCREASED [None]
